FAERS Safety Report 16845613 (Version 1)
Quarter: 2019Q3

REPORT INFORMATION
  Report Type: Spontaneous
  Country: US (occurrence: US)
  Receive Date: 20190924
  Receipt Date: 20190924
  Transmission Date: 20191005
  Serious: No
  Sender: FDA-Public Use
  Company Number: US-MTPC-MTDA2019-0071260

PATIENT

DRUGS (1)
  1. RADICAVA [Suspect]
     Active Substance: EDARAVONE
     Indication: AMYOTROPHIC LATERAL SCLEROSIS
     Dosage: 60 MG QD X 14 DAYS FOLLOWED BY 14 DAYS DRUG-FREE. SUBSEQUENT CYCLES 10 OUT OF 14 DAYS.
     Route: 042
     Dates: start: 20190327, end: 20190816

REACTIONS (4)
  - Disease progression [Unknown]
  - Feeding tube user [Unknown]
  - Gait disturbance [Unknown]
  - Muscle spasms [Unknown]
